FAERS Safety Report 8948387 (Version 1)
Quarter: 2012Q4

REPORT INFORMATION
  Report Type: Spontaneous
  Country: US (occurrence: None)
  Receive Date: 20121126
  Receipt Date: 20121126
  Transmission Date: 20130627
  Serious: Yes (Hospitalization, Other)
  Sender: FDA-Public Use
  Company Number: 2012/169

PATIENT
  Age: 21 Year
  Sex: Female

DRUGS (2)
  1. LEVOFLOXACIN [Suspect]
     Dosage: Intravenous
     Route: 042
  2. VANCOMYCIN [Suspect]
     Dosage: Intravenous
     Route: 042

REACTIONS (1)
  - Drug reaction with eosinophilia and systemic symptoms [None]
